FAERS Safety Report 6244448-1 (Version None)
Quarter: 2009Q2

REPORT INFORMATION
  Report Type: 
  Country: None (occurrence: None)
  Receive Date: 20090623
  Receipt Date: 20090623
  Transmission Date: 20091009
  Serious: Yes (Hospitalization)
  Sender: FDA-Public Use
  Company Number: None

PATIENT
  Sex: Male
  Weight: 16 kg

DRUGS (5)
  1. DEXAMETHASONE [Suspect]
     Dosage: 66 MG
  2. METHOTREXATE [Suspect]
     Dosage: 12 MG
  3. ONCASPAR [Suspect]
     Dosage: 1700 UNIT
  4. VINCRISTINE SULFATE [Suspect]
     Dosage: 3 MG
  5. CYTARABINE [Suspect]
     Dosage: 70 MG

REACTIONS (12)
  - ASPARTATE AMINOTRANSFERASE INCREASED [None]
  - BLOOD GLUCOSE INCREASED [None]
  - BLOOD PRESSURE DECREASED [None]
  - BLOOD SODIUM DECREASED [None]
  - BONE MARROW FAILURE [None]
  - FLUSHING [None]
  - HYPERHIDROSIS [None]
  - HYPERREFLEXIA [None]
  - NAUSEA [None]
  - TACHYCARDIA [None]
  - TACHYPNOEA [None]
  - VOMITING [None]
